FAERS Safety Report 4956582-4 (Version None)
Quarter: 2006Q1

REPORT INFORMATION
  Report Type: 
  Country: None (occurrence: None)
  Receive Date: 20060329
  Receipt Date: 20060306
  Transmission Date: 20060701
  Serious: Yes (Hospitalization, Other)
  Sender: FDA-Public Use
  Company Number: JP-BRISTOL-MYERS SQUIBB COMPANY-13309638

PATIENT
  Age: 84 Year
  Sex: Female

DRUGS (10)
  1. GATIFLOXACIN [Suspect]
     Indication: PNEUMONIA
     Route: 048
     Dates: start: 20060222, end: 20060226
  2. MUCODYNE [Concomitant]
     Route: 048
     Dates: start: 20060202, end: 20060226
  3. COBATENSIN [Concomitant]
     Route: 048
  4. DIOVAN [Concomitant]
     Route: 048
  5. ASPIRIN [Concomitant]
     Route: 048
  6. COBALAT [Concomitant]
     Route: 048
  7. ANTOBRON [Concomitant]
     Route: 048
  8. AMARYL [Concomitant]
     Route: 048
  9. CLARITHROMYCIN [Concomitant]
     Route: 048
  10. ISOPIT [Concomitant]
     Route: 062

REACTIONS (3)
  - DEPRESSED LEVEL OF CONSCIOUSNESS [None]
  - HYPOGLYCAEMIA [None]
  - MEDICATION ERROR [None]
